FAERS Safety Report 4758627-3 (Version None)
Quarter: 2005Q3

REPORT INFORMATION
  Report Type: 
  Country: None (occurrence: None)
  Receive Date: 20050901
  Receipt Date: 20050812
  Transmission Date: 20060218
  Serious: Yes (Hospitalization)
  Sender: FDA-Public Use
  Company Number: JP-BRISTOL-MYERS SQUIBB COMPANY-13081690

PATIENT
  Age: 73 Year
  Sex: Male

DRUGS (2)
  1. GATIFLO TABS 100 MG [Suspect]
     Indication: CYSTITIS
     Route: 048
     Dates: start: 20050805, end: 20050807
  2. EUGLUCON [Concomitant]
     Route: 048

REACTIONS (1)
  - HYPOGLYCAEMIA [None]
